FAERS Safety Report 8476803-3 (Version None)
Quarter: 2012Q2

REPORT INFORMATION
  Report Type: 
  Country: None (occurrence: None)
  Receive Date: 20120628
  Receipt Date: 20120510
  Transmission Date: 20120825
  Serious: No
  Sender: FDA-Public Use
  Company Number: US-BAYER-2012-049375

PATIENT
  Age: 71 Year
  Sex: Female
  Weight: 75 kg

DRUGS (4)
  1. ATACAND HCT [Concomitant]
  2. ALEVE (CAPLET) [Suspect]
     Indication: ARTHRITIS
     Dosage: 2 DF, QD
     Route: 048
  3. CRESTOR [Concomitant]
  4. BYSTOLIC [Concomitant]
     Dosage: UNK

REACTIONS (2)
  - NO ADVERSE EVENT [None]
  - BLOOD PRESSURE INCREASED [None]
